FAERS Safety Report 19854669 (Version 1)
Quarter: 2021Q3

REPORT INFORMATION
  Report Type: Spontaneous
  Country: CN (occurrence: CN)
  Receive Date: 20210920
  Receipt Date: 20210920
  Transmission Date: 20211014
  Serious: Yes (Hospitalization, Other)
  Sender: FDA-Public Use
  Company Number: CN-LUPIN PHARMACEUTICALS INC.-2021-17761

PATIENT
  Age: 32 Year
  Sex: Female

DRUGS (2)
  1. PROGESTERONE. [Suspect]
     Active Substance: PROGESTERONE
     Indication: PRETERM PREMATURE RUPTURE OF MEMBRANES
     Dosage: 40 MILLIGRAM, QD
     Route: 030
  2. POTASSIUM CHLORIDE. [Suspect]
     Active Substance: POTASSIUM CHLORIDE
     Indication: COMPLICATION OF PREGNANCY
     Dosage: UNK (TRANSABDOMINAL ULTRASOUND?GUIDED; 2?5ML OF 10% POTASSIUM CHLORIDE, INJECTION)
     Route: 016

REACTIONS (3)
  - Maternal exposure during pregnancy [Unknown]
  - Normal newborn [Unknown]
  - Premature rupture of membranes [Unknown]
